FAERS Safety Report 17409979 (Version 2)
Quarter: 2020Q1

REPORT INFORMATION
  Report Type: Spontaneous
  Country: CH (occurrence: CH)
  Receive Date: 20200212
  Receipt Date: 20200303
  Transmission Date: 20200409
  Serious: Yes (Other)
  Sender: FDA-Public Use
  Company Number: CH-PFIZER INC-2020059597

PATIENT
  Sex: Female

DRUGS (2)
  1. IBRANCE [Suspect]
     Active Substance: PALBOCICLIB
     Dosage: UNK, CYCLIC (21 DAYS INTAKE, 7 DAYS PAUSE)
  2. IBRANCE [Suspect]
     Active Substance: PALBOCICLIB
     Dosage: 2ND CYCLE

REACTIONS (6)
  - Blood pressure decreased [Recovered/Resolved]
  - Rash [Recovered/Resolved]
  - Hypersensitivity [Recovered/Resolved]
  - Skin lesion [Recovered/Resolved]
  - Urticaria [Recovered/Resolved]
  - Malaise [Recovered/Resolved]
